FAERS Safety Report 6203623-2 (Version None)
Quarter: 2009Q2

REPORT INFORMATION
  Report Type: 
  Country: None (occurrence: None)
  Receive Date: 20090522
  Receipt Date: 20090522
  Transmission Date: 20091009
  Serious: Yes (Other)
  Sender: FDA-Public Use
  Company Number: None

PATIENT
  Age: 5 Year
  Sex: Male
  Weight: 24.0406 kg

DRUGS (1)
  1. SINGULAIR [Suspect]
     Indication: SEASONAL ALLERGY
     Dosage: 5MG 1X/DAY PO ALMOST ONE MONTH
     Route: 048
     Dates: start: 20090420, end: 20090516

REACTIONS (1)
  - DYSPHEMIA [None]
